FAERS Safety Report 10157659 (Version 1)
Quarter: 2014Q2

REPORT INFORMATION
  Report Type: Spontaneous
  Country: US (occurrence: US)
  Receive Date: 20140507
  Receipt Date: 20140507
  Transmission Date: 20141212
  Serious: No
  Sender: FDA-Public Use
  Company Number: US-009507513-1405USA003360

PATIENT
  Age: 27 Year
  Sex: Female
  Weight: 107.94 kg

DRUGS (1)
  1. NEXPLANON [Suspect]
     Indication: CONTRACEPTION
     Dosage: DOSE/FREQUENCY-1 ROD FOR 3YEARS
     Route: 059
     Dates: start: 20140304

REACTIONS (5)
  - Headache [Unknown]
  - Muscle spasms [Unknown]
  - Headache [Unknown]
  - Depression [Unknown]
  - Back pain [Unknown]
